FAERS Safety Report 9177008 (Version 1)
Quarter: 2013Q1

REPORT INFORMATION
  Report Type: Spontaneous
  Country: CH (occurrence: CH)
  Receive Date: 20130321
  Receipt Date: 20130321
  Transmission Date: 20140127
  Serious: Yes (Hospitalization)
  Sender: FDA-Public Use
  Company Number: CH-ASTRAZENECA-2013SE17019

PATIENT
  Age: 82 Year
  Sex: Female
  Weight: 66.3 kg

DRUGS (7)
  1. NEXIUM [Suspect]
     Indication: GASTROOESOPHAGEAL REFLUX DISEASE
     Route: 048
     Dates: start: 2012, end: 20121218
  2. CITALOPRAM [Interacting]
     Indication: DEPRESSION
     Route: 048
  3. CITALOPRAM [Interacting]
     Indication: DEPRESSION
     Route: 048
     Dates: start: 20121208, end: 20121218
  4. LEXOTANIL [Concomitant]
     Indication: ANXIETY DISORDER
     Route: 048
  5. BUSCOPAN [Concomitant]
     Indication: CONSTIPATION
     Route: 048
  6. LISINOPRIL [Concomitant]
     Indication: ESSENTIAL HYPERTENSION
     Route: 048
  7. ZOLPIDEM [Concomitant]
     Indication: SLEEP DISORDER
     Route: 048

REACTIONS (3)
  - Potentiating drug interaction [Unknown]
  - Inappropriate antidiuretic hormone secretion [Recovered/Resolved]
  - Diverticulitis [Unknown]
